FAERS Safety Report 9983663 (Version 2)
Quarter: 2014Q1

REPORT INFORMATION
  Report Type: Spontaneous
  Country: US (occurrence: US)
  Receive Date: 20140307
  Receipt Date: 20140307
  Transmission Date: 20141002
  Serious: Yes (Other)
  Sender: FDA-Public Use
  Company Number: US-PFIZER INC-2014039273

PATIENT
  Age: 67 Year
  Sex: Female

DRUGS (2)
  1. PREGABALIN [Suspect]
     Indication: FIBROMYALGIA
     Dosage: 75, UNK
     Route: 048
  2. PREGABALIN [Suspect]
     Indication: PAIN

REACTIONS (3)
  - Suicidal ideation [Unknown]
  - Depression [Unknown]
  - Drug ineffective [Unknown]
